FAERS Safety Report 6244148-8 (Version None)
Quarter: 2009Q2

REPORT INFORMATION
  Report Type: 
  Country: None (occurrence: None)
  Receive Date: 20090623
  Receipt Date: 20090623
  Transmission Date: 20091009
  Serious: Yes (Death)
  Sender: FDA-Public Use
  Company Number: None

PATIENT
  Age: 62 Year
  Sex: Female
  Weight: 86 kg

DRUGS (13)
  1. FLUDARABINE PHOSPHATE [Suspect]
  2. MELPHALAN [Suspect]
  3. ANTI-THYMOCYTE GLOBULIN NOS [Suspect]
  4. HYDREA [Concomitant]
  5. DIPHENHYDRAMINE (BENADRYL) [Concomitant]
  6. ACETAMINOPHEN [Concomitant]
  7. SYNTHROID [Concomitant]
  8. METHYLPHENIDATE (RITALIN) [Concomitant]
  9. ALTACE [Concomitant]
  10. CHLOROTHIAZIDE SODIUM (DIURIL) [Concomitant]
  11. ZANTAC [Concomitant]
  12. POTASSIUM CHLORIDE [Concomitant]
  13. PREMPRO [Concomitant]

REACTIONS (19)
  - ATRIAL FIBRILLATION [None]
  - BLOOD STEM CELL TRANSPLANT FAILURE [None]
  - BRADYCARDIA [None]
  - BRONCHOALVEOLAR LAVAGE ABNORMAL [None]
  - CATHETER CULTURE POSITIVE [None]
  - FEBRILE NEUTROPENIA [None]
  - HYPOKALAEMIA [None]
  - HYPOMAGNESAEMIA [None]
  - HYPOVOLAEMIA [None]
  - METABOLIC ACIDOSIS [None]
  - PLATELET COUNT DECREASED [None]
  - PULMONARY ALVEOLAR HAEMORRHAGE [None]
  - PUPIL FIXED [None]
  - RENAL FAILURE ACUTE [None]
  - SEPSIS [None]
  - SEPTIC SHOCK [None]
  - STAPHYLOCOCCAL INFECTION [None]
  - SUPRAVENTRICULAR EXTRASYSTOLES [None]
  - VENTRICULAR EXTRASYSTOLES [None]
